FAERS Safety Report 21248077 (Version 1)
Quarter: 2022Q3

REPORT INFORMATION
  Report Type: Spontaneous
  Country: US (occurrence: None)
  Receive Date: 20220823
  Receipt Date: 20220823
  Transmission Date: 20221027
  Serious: Yes (Hospitalization)
  Sender: FDA-Public Use
  Company Number: None

PATIENT
  Sex: Female

DRUGS (19)
  1. MYCAPSSA [Suspect]
     Active Substance: OCTREOTIDE
     Indication: Acromegaly
     Dosage: OTHER FREQUENCY : 40 MG AM + 20 MG P;?
     Route: 048
  2. MYCAPSSA [Suspect]
     Active Substance: OCTREOTIDE
     Indication: Gigantism
  3. KLOR-CON M20 [Concomitant]
     Active Substance: POTASSIUM CHLORIDE
  4. PREGABALIN [Concomitant]
     Active Substance: PREGABALIN
  5. COLACE [Concomitant]
     Active Substance: DOCUSATE SODIUM
  6. VITAMINS [Concomitant]
     Active Substance: VITAMINS
  7. VITAMIN B12 [Concomitant]
     Active Substance: CYANOCOBALAMIN
  8. PROBIOTICS NOS [Concomitant]
     Active Substance: PROBIOTICS NOS
  9. ASPIRIN [Concomitant]
     Active Substance: ASPIRIN
  10. SYNTHROID [Concomitant]
     Active Substance: LEVOTHYROXINE SODIUM
  11. LUBIPROSTONE [Concomitant]
     Active Substance: LUBIPROSTONE
  12. METOPROLOL TARTRATE [Concomitant]
     Active Substance: METOPROLOL TARTRATE
  13. ALLEGRA [Concomitant]
     Active Substance: FEXOFENADINE HYDROCHLORIDE
  14. TOUJEO [Concomitant]
     Active Substance: INSULIN GLARGINE
  15. NOVOLOG [Concomitant]
     Active Substance: INSULIN ASPART
  16. GLIPIZIDE [Concomitant]
     Active Substance: GLIPIZIDE
  17. FUROSEMIDE [Concomitant]
     Active Substance: FUROSEMIDE
  18. SPIRONOLACTONE [Concomitant]
     Active Substance: SPIRONOLACTONE
  19. LISINOPRIL [Concomitant]
     Active Substance: LISINOPRIL

REACTIONS (7)
  - Product dose omission in error [None]
  - Treatment delayed [None]
  - Product prescribing issue [None]
  - Therapeutic product effect increased [None]
  - Blood growth hormone increased [None]
  - Cardiac pacemaker replacement [None]
  - Dehydration [None]
